FAERS Safety Report 23289709 (Version 2)
Quarter: 2024Q1

REPORT INFORMATION
  Report Type: Report from Study
  Country: CN (occurrence: CN)
  Receive Date: 20231212
  Receipt Date: 20240117
  Transmission Date: 20240410
  Serious: No
  Sender: FDA-Public Use
  Company Number: CN-PFIZER INC-PV202300200774

PATIENT
  Age: 73 Year
  Sex: Male
  Weight: 70 kg

DRUGS (28)
  1. NIRMATRELVIR\RITONAVIR [Suspect]
     Active Substance: NIRMATRELVIR\RITONAVIR
     Indication: COVID-19
     Dosage: [NIRMATRELVIR 300MG]/[RITONAVIR 100MG], 2X/DAY
     Route: 048
     Dates: start: 20220428, end: 20220503
  2. NIRMATRELVIR\RITONAVIR [Suspect]
     Active Substance: NIRMATRELVIR\RITONAVIR
     Dosage: [NIRMATRELVIR 300MG]/[RITONAVIR 100MG], 2X/DAY
     Route: 048
     Dates: start: 20220522, end: 20220527
  3. ZOLPIDEM TARTRATE [Concomitant]
     Active Substance: ZOLPIDEM TARTRATE
     Indication: Insomnia
     Dosage: UNK
     Route: 048
     Dates: start: 20220505, end: 20220505
  4. ZOLPIDEM TARTRATE [Concomitant]
     Active Substance: ZOLPIDEM TARTRATE
     Dosage: UNK
     Route: 048
     Dates: start: 20220509, end: 20220510
  5. ZOLPIDEM TARTRATE [Concomitant]
     Active Substance: ZOLPIDEM TARTRATE
     Dosage: UNK
     Route: 048
     Dates: start: 20220513, end: 20220513
  6. ZOLPIDEM TARTRATE [Concomitant]
     Active Substance: ZOLPIDEM TARTRATE
     Dosage: UNK
     Dates: start: 20220514, end: 20220514
  7. ZOLPIDEM TARTRATE [Concomitant]
     Active Substance: ZOLPIDEM TARTRATE
     Dosage: UNK
     Route: 048
     Dates: start: 20220519, end: 20220523
  8. ZOLPIDEM TARTRATE [Concomitant]
     Active Substance: ZOLPIDEM TARTRATE
     Dosage: UNK
     Route: 048
     Dates: start: 20220528, end: 20220531
  9. ZAO REN AN SHEN [Concomitant]
     Indication: Insomnia
     Dosage: ZAOREN ANSHEN YE
     Route: 048
     Dates: start: 20220506, end: 20220513
  10. ZAO REN AN SHEN [Concomitant]
     Dosage: ZAOREN ANSHEN YE
     Route: 061
     Dates: start: 20220515, end: 20220515
  11. ZAO REN AN SHEN [Concomitant]
     Dosage: ZAOREN ANSHEN YE
     Route: 048
     Dates: start: 20220517, end: 20220531
  12. NIU HUANG SHANG QING [ANGELICA DAHURICA ROOT;ANGELICA SINENSIS ROOT;BO [Concomitant]
     Indication: Gingival pain
     Dosage: NIU HUANG SHANG QING WAN
     Route: 048
     Dates: start: 20220510, end: 20220521
  13. CEFUROXIME AXETIL [Concomitant]
     Active Substance: CEFUROXIME AXETIL
     Indication: Otitis media
     Dosage: UNK
     Route: 048
     Dates: start: 20220516, end: 20220522
  14. LORAZEPAM [Concomitant]
     Active Substance: LORAZEPAM
     Indication: Anxiety
     Dosage: UNK
     Route: 048
     Dates: start: 20220513, end: 20220517
  15. LORAZEPAM [Concomitant]
     Active Substance: LORAZEPAM
     Dosage: UNK
     Route: 048
     Dates: start: 20220520, end: 20220523
  16. LORAZEPAM [Concomitant]
     Active Substance: LORAZEPAM
     Dosage: UNK
     Route: 048
     Dates: start: 20220527, end: 20220527
  17. LORAZEPAM [Concomitant]
     Active Substance: LORAZEPAM
     Dosage: UNK
     Route: 048
     Dates: start: 20220528, end: 20220531
  18. MIRTAZAPINE [Concomitant]
     Active Substance: MIRTAZAPINE
     Indication: Anxiety
     Dosage: UNK
     Route: 048
     Dates: start: 20220522, end: 20220523
  19. FLURBIPROFEN [Concomitant]
     Active Substance: FLURBIPROFEN
     Indication: Pain
     Dosage: CATAPLASMS
     Route: 061
     Dates: start: 20220510, end: 20220510
  20. TELMISARTAN [Concomitant]
     Active Substance: TELMISARTAN
     Indication: Hypertension
     Dosage: UNK
     Route: 048
     Dates: start: 20220429, end: 20220514
  21. TELMISARTAN [Concomitant]
     Active Substance: TELMISARTAN
     Dosage: UNK
     Route: 048
     Dates: start: 20220514
  22. METOPROLOL SUCCINATE [Concomitant]
     Active Substance: METOPROLOL SUCCINATE
     Indication: Hypertension
     Dosage: SUSTAINED-RELEASE TABLET
     Route: 048
     Dates: start: 20220424, end: 20220426
  23. METOPROLOL SUCCINATE [Concomitant]
     Active Substance: METOPROLOL SUCCINATE
     Dosage: SUSTAINED-RELEASE TABLET
     Route: 048
     Dates: start: 20220426
  24. MUPIROCIN [Concomitant]
     Active Substance: MUPIROCIN
     Indication: Otitis media
     Dosage: UNK
     Route: 061
     Dates: start: 20220429, end: 20220429
  25. MUPIROCIN [Concomitant]
     Active Substance: MUPIROCIN
     Dosage: UNK
     Route: 061
     Dates: start: 20220515, end: 20220515
  26. HYDROGEN PEROXIDE [Concomitant]
     Active Substance: HYDROGEN PEROXIDE
     Indication: Wound treatment
     Dosage: SOLUTION
     Route: 061
     Dates: start: 20220515
  27. SODIUM HYALURONATE [Concomitant]
     Active Substance: HYALURONATE SODIUM
     Dosage: UNK
     Route: 047
     Dates: start: 20220516, end: 20220516
  28. VITAMIN B COMPLEX [Concomitant]
     Active Substance: CYANOCOBALAMIN\DEXPANTHENOL\NIACINAMIDE\PYRIDOXINE HYDROCHLORIDE\RIBOFLAVIN 5^-PHOSPHATE SODIUM\THIA
     Dosage: UNK
     Route: 048
     Dates: start: 20220524, end: 20220524

REACTIONS (1)
  - Overdose [Unknown]
